FAERS Safety Report 21034486 (Version 2)
Quarter: 2022Q3

REPORT INFORMATION
  Report Type: Spontaneous
  Country: US (occurrence: US)
  Receive Date: 20220701
  Receipt Date: 20220708
  Transmission Date: 20221026
  Serious: No
  Sender: FDA-Public Use
  Company Number: US-PFIZER INC-202200715326

PATIENT
  Age: 22 Year
  Sex: Female

DRUGS (2)
  1. CARBOPLATIN [Suspect]
     Active Substance: CARBOPLATIN
     Dosage: UNK (2 CYCLES)
  2. PACLITAXEL [Suspect]
     Active Substance: PACLITAXEL
     Dosage: UNK (2 CYCLES)

REACTIONS (1)
  - Neoplasm progression [Unknown]
